FAERS Safety Report 9807250 (Version 1)
Quarter: 2014Q1

REPORT INFORMATION
  Report Type: Report from Study
  Country: US (occurrence: US)
  Receive Date: 20140110
  Receipt Date: 20140110
  Transmission Date: 20141002
  Serious: Yes (Hospitalization)
  Sender: FDA-Public Use
  Company Number: US-ACTELION-A-US2013-93186

PATIENT
  Age: 90 Year
  Sex: Female

DRUGS (1)
  1. TRACLEER [Suspect]
     Indication: PRODUCT USED FOR UNKNOWN INDICATION
     Route: 048

REACTIONS (3)
  - Pulmonary embolism [Unknown]
  - Hypertension [Unknown]
  - Dyspnoea [Unknown]
